FAERS Safety Report 25928443 (Version 1)
Quarter: 2025Q4

REPORT INFORMATION
  Report Type: Other
  Country: IN (occurrence: IN)
  Receive Date: 20251016
  Receipt Date: 20251016
  Transmission Date: 20260117
  Serious: Yes (Hospitalization)
  Sender: ANI
  Company Number: IN-ANIPHARMA-030924

PATIENT
  Age: 32 Year
  Sex: Female

DRUGS (8)
  1. CYCLOPHOSPHAMIDE [Suspect]
     Active Substance: CYCLOPHOSPHAMIDE
     Indication: Gastrointestinal disorder
     Dosage: IMMUNOSUPPRESSIVE THERAPY
  2. ACETYLCYSTEINE [Concomitant]
     Active Substance: ACETYLCYSTEINE
     Indication: Gastrointestinal disorder
     Dosage: N-ACETYL CYSTEINE INFUSION
  3. ACETYLCYSTEINE [Concomitant]
     Active Substance: ACETYLCYSTEINE
     Indication: Renal failure
     Dosage: N-ACETYL CYSTEINE INFUSION
  4. ACETYLCYSTEINE [Concomitant]
     Active Substance: ACETYLCYSTEINE
     Indication: Hepatic failure
     Dosage: N-ACETYL CYSTEINE INFUSION
  5. ACETYLCYSTEINE [Concomitant]
     Active Substance: ACETYLCYSTEINE
     Indication: Poisoning
     Dosage: N-ACETYL CYSTEINE INFUSION
  6. CYCLOPHOSPHAMIDE [Suspect]
     Active Substance: CYCLOPHOSPHAMIDE
     Indication: Renal failure
     Dosage: IMMUNOSUPPRESSIVE THERAPY
  7. CYCLOPHOSPHAMIDE [Suspect]
     Active Substance: CYCLOPHOSPHAMIDE
     Indication: Hepatic failure
     Dosage: IMMUNOSUPPRESSIVE THERAPY
  8. CYCLOPHOSPHAMIDE [Suspect]
     Active Substance: CYCLOPHOSPHAMIDE
     Indication: Poisoning
     Dosage: IMMUNOSUPPRESSIVE THERAPY

REACTIONS (1)
  - Therapeutic response unexpected [Unknown]
